FAERS Safety Report 16773810 (Version 2)
Quarter: 2019Q3

REPORT INFORMATION
  Report Type: Spontaneous
  Country: BE (occurrence: BE)
  Receive Date: 20190904
  Receipt Date: 20190917
  Transmission Date: 20191005
  Serious: Yes (Other)
  Sender: FDA-Public Use
  Company Number: BE-ASTRAZENECA-2019SF24645

PATIENT
  Age: 9450 Day
  Sex: Female

DRUGS (1)
  1. FASENRA [Suspect]
     Active Substance: BENRALIZUMAB
     Indication: ASTHMA
     Route: 058
     Dates: start: 20190620

REACTIONS (8)
  - Headache [Recovered/Resolved]
  - Local reaction [Unknown]
  - Asthma [Recovering/Resolving]
  - Vertigo [Unknown]
  - Respiratory disorder [Unknown]
  - Product dose omission [Unknown]
  - Pyrexia [Recovering/Resolving]
  - Nausea [Recovering/Resolving]

NARRATIVE: CASE EVENT DATE: 20190620
